FAERS Safety Report 23488203 (Version 3)
Quarter: 2024Q4

REPORT INFORMATION
  Report Type: Spontaneous
  Country: US (occurrence: US)
  Receive Date: 20240206
  Receipt Date: 20241219
  Transmission Date: 20250114
  Serious: No
  Sender: SANOFI AVENTIS
  Company Number: US-SA-SAC20240130000156

PATIENT
  Age: 46 Year
  Sex: Female

DRUGS (1)
  1. CERDELGA [Suspect]
     Active Substance: ELIGLUSTAT
     Indication: Gaucher^s disease
     Dosage: 84 MG, QD
     Route: 048
     Dates: start: 202307

REACTIONS (5)
  - Weight increased [Unknown]
  - Weight decreased [Unknown]
  - Dyspepsia [Unknown]
  - Cough [Unknown]
  - Product dose omission in error [Unknown]

NARRATIVE: CASE EVENT DATE: 20240122
